FAERS Safety Report 7623731-9 (Version None)
Quarter: 2011Q3

REPORT INFORMATION
  Report Type: 
  Country: None (occurrence: None)
  Receive Date: 20110720
  Receipt Date: 20110714
  Transmission Date: 20111222
  Serious: Yes (Death)
  Sender: FDA-Public Use
  Company Number: US-GLAXOSMITHKLINE-A0936837A

PATIENT
  Age: 84 Year
  Sex: Male

DRUGS (4)
  1. BLOOD PRESSURE MEDICATION [Concomitant]
  2. NITROGLYCERIN [Concomitant]
  3. ARIXTRA [Suspect]
     Indication: CARDIAC DISORDER
     Dosage: 2.5MG PER DAY
     Route: 058
     Dates: start: 20070101, end: 20110709
  4. HEARTBURN MEDICATION [Concomitant]

REACTIONS (1)
  - DEATH [None]
